FAERS Safety Report 5251192-6 (Version None)
Quarter: 2007Q1

REPORT INFORMATION
  Report Type: 
  Country: None (occurrence: None)
  Receive Date: 20070228
  Receipt Date: 20060913
  Transmission Date: 20070707
  Serious: No
  Sender: FDA-Public Use
  Company Number: US-GLAXOSMITHKLINE-A0620094A

PATIENT
  Sex: Male

DRUGS (5)
  1. LAMICTAL [Suspect]
     Route: 048
  2. WELLBUTRIN [Suspect]
     Route: 048
  3. LITHIUM CARBONATE [Suspect]
     Dosage: 600MG PER DAY
  4. LEXAPRO [Suspect]
     Dosage: 10MG PER DAY
  5. AMILORIDE HYDROCHLORIDE [Suspect]
     Dosage: 5MG PER DAY

REACTIONS (4)
  - DRUG INEFFECTIVE [None]
  - ILL-DEFINED DISORDER [None]
  - SENSORY DISTURBANCE [None]
  - SKIN REACTION [None]
